FAERS Safety Report 16778060 (Version 2)
Quarter: 2019Q4

REPORT INFORMATION
  Report Type: Spontaneous
  Country: US (occurrence: US)
  Receive Date: 20190905
  Receipt Date: 20191003
  Transmission Date: 20200122
  Serious: Yes (Hospitalization)
  Sender: FDA-Public Use
  Company Number: US-ACTELION-A-NJ2019-188718

PATIENT
  Sex: Female
  Weight: 71.66 kg

DRUGS (4)
  1. AMLODIPINE [Concomitant]
     Active Substance: AMLODIPINE BESYLATE
  2. ADCIRCA [Concomitant]
     Active Substance: TADALAFIL
  3. UPTRAVI [Suspect]
     Active Substance: SELEXIPAG
     Indication: PULMONARY ARTERIAL HYPERTENSION
     Dosage: 400 MCG, BID
     Route: 048
  4. OPSUMIT [Concomitant]
     Active Substance: MACITENTAN

REACTIONS (10)
  - Cellulitis [Unknown]
  - Administration site swelling [Unknown]
  - Blood pressure fluctuation [Unknown]
  - Fatigue [Unknown]
  - Dizziness [Unknown]
  - Pyrexia [Unknown]
  - Urinary tract infection [Unknown]
  - Malaise [Unknown]
  - Pneumonia [Unknown]
  - Administration site erythema [Unknown]
